FAERS Safety Report 25840922 (Version 1)
Quarter: 2025Q3

REPORT INFORMATION
  Report Type: Spontaneous
  Country: US (occurrence: None)
  Receive Date: 20250923
  Receipt Date: 20250923
  Transmission Date: 20251020
  Serious: Yes (Hospitalization, Disabling, Congenital Anomaly, Other)
  Sender: FDA-CTU
  Company Number: None

PATIENT
  Age: 24 Year
  Sex: Male

DRUGS (5)
  1. INVEGA [Suspect]
     Active Substance: PALIPERIDONE
  2. ABILIFY [Suspect]
     Active Substance: ARIPIPRAZOLE
  3. HALOPERIDOL [Suspect]
     Active Substance: HALOPERIDOL
  4. LORAZEPAM [Suspect]
     Active Substance: LORAZEPAM
  5. EMERGEN-C [Suspect]
     Active Substance: VITAMINS

REACTIONS (9)
  - Burning sensation [None]
  - Head discomfort [None]
  - Hyperhidrosis [None]
  - Feeling abnormal [None]
  - Sensory disturbance [None]
  - Seborrhoea [None]
  - Thinking abnormal [None]
  - Insomnia [None]
  - Emotional disorder [None]

NARRATIVE: CASE EVENT DATE: 20211201
